FAERS Safety Report 25036800 (Version 1)
Quarter: 2025Q1

REPORT INFORMATION
  Report Type: Spontaneous
  Country: US (occurrence: US)
  Receive Date: 20250304
  Receipt Date: 20250304
  Transmission Date: 20250408
  Serious: Yes (Other)
  Sender: RECKITT BENCKISER
  Company Number: US-INDIVIOR US-INDV-159409-2025

PATIENT

DRUGS (1)
  1. SUBOXONE [Suspect]
     Active Substance: BUPRENORPHINE HYDROCHLORIDE\NALOXONE HYDROCHLORIDE
     Indication: Drug dependence
     Dosage: 8 MILLIGRAM, QD
     Route: 065
     Dates: start: 2010, end: 2023

REACTIONS (5)
  - Craniofacial fracture [Unknown]
  - Fall [Recovered/Resolved]
  - Tooth discolouration [Unknown]
  - Tooth loss [Unknown]
  - Procedural pain [Unknown]

NARRATIVE: CASE EVENT DATE: 20120101
